FAERS Safety Report 12059444 (Version 1)
Quarter: 2016Q1

REPORT INFORMATION
  Report Type: Spontaneous
  Country: TR (occurrence: TR)
  Receive Date: 20160210
  Receipt Date: 20160210
  Transmission Date: 20160526
  Serious: Yes (Other)
  Sender: FDA-Public Use
  Company Number: TR-WATSON-2016-02795

PATIENT
  Age: 73 Year
  Sex: Male

DRUGS (1)
  1. ENOXAPARIN (UNKNOWN) [Suspect]
     Active Substance: ENOXAPARIN
     Indication: ANGINA UNSTABLE
     Dosage: 60 MG, BID
     Route: 058

REACTIONS (1)
  - Dermatitis bullous [Recovered/Resolved]
